FAERS Safety Report 25241945 (Version 1)
Quarter: 2025Q2

REPORT INFORMATION
  Report Type: Spontaneous
  Country: US (occurrence: US)
  Receive Date: 20250426
  Receipt Date: 20250426
  Transmission Date: 20250716
  Serious: Yes (Other)
  Sender: AMGEN
  Company Number: US-AMGEN-USASP2025077517

PATIENT
  Age: 79 Year
  Sex: Male

DRUGS (9)
  1. RITUXIMAB [Suspect]
     Active Substance: RITUXIMAB
     Indication: Bernard-Soulier syndrome
     Dosage: 375 MILLIGRAM/SQ. METER, QWK (FOR 4 WEEKS)
     Route: 065
  2. RITUXIMAB [Suspect]
     Active Substance: RITUXIMAB
     Indication: Hodgkin^s disease
  3. PREDNISONE [Suspect]
     Active Substance: PREDNISONE
     Indication: Hodgkin^s disease
     Route: 065
  4. TRANEXAMIC ACID [Concomitant]
     Active Substance: TRANEXAMIC ACID
  5. METHOTREXATE [Concomitant]
     Active Substance: METHOTREXATE
     Route: 065
  6. BLEOMYCIN [Concomitant]
     Active Substance: BLEOMYCIN SULFATE
     Route: 065
  7. DOXORUBICIN [Concomitant]
     Active Substance: DOXORUBICIN
     Route: 065
  8. CYCLOPHOSPHAMIDE [Concomitant]
     Active Substance: CYCLOPHOSPHAMIDE
     Route: 065
  9. VINCRISTINE [Concomitant]
     Active Substance: VINCRISTINE

REACTIONS (8)
  - Immune thrombocytopenia [Unknown]
  - Pulmonary embolism [Unknown]
  - Type 2 diabetes mellitus [Unknown]
  - Chronic hepatitis B [Unknown]
  - Cerebrovascular accident [Unknown]
  - Drug effective for unapproved indication [Unknown]
  - Off label use [Unknown]
  - Bernard-Soulier syndrome [Unknown]
